FAERS Safety Report 5793185-6 (Version None)
Quarter: 2008Q2

REPORT INFORMATION
  Report Type: 
  Country: None (occurrence: None)
  Receive Date: 20080627
  Receipt Date: 20080620
  Transmission Date: 20081010
  Serious: Yes (Other)
  Sender: FDA-Public Use
  Company Number: US-ASTRAZENECA-2008UW04961

PATIENT
  Age: 68 Year
  Sex: Female
  Weight: 91.2 kg

DRUGS (9)
  1. ARIMIDEX [Suspect]
     Indication: BREAST CANCER
     Route: 048
     Dates: start: 20030226
  2. LEVOXYL [Concomitant]
     Indication: HYPOTHYROIDISM
     Route: 048
     Dates: start: 19940401
  3. ZYRTEC [Concomitant]
  4. ALBUTEROL [Concomitant]
  5. ASPIRIN [Concomitant]
  6. HYDROCHLOROTHIAZIDE [Concomitant]
     Indication: HYPERTENSION
     Route: 048
     Dates: start: 20031001
  7. GLIPIZIDE [Concomitant]
     Indication: TYPE 2 DIABETES MELLITUS
     Route: 048
     Dates: start: 20031201
  8. METFORMIN HCL [Concomitant]
  9. LOVASTATIN [Concomitant]

REACTIONS (6)
  - AGGRESSION [None]
  - BLOOD CHOLESTEROL INCREASED [None]
  - DIABETES MELLITUS [None]
  - HAIR GROWTH ABNORMAL [None]
  - HYPERTENSION [None]
  - WEIGHT INCREASED [None]
